FAERS Safety Report 13726559 (Version 1)
Quarter: 2017Q3

REPORT INFORMATION
  Report Type: Spontaneous
  Country: CH (occurrence: CH)
  Receive Date: 20170707
  Receipt Date: 20170707
  Transmission Date: 20171127
  Serious: Yes (Life-Threatening)
  Sender: FDA-Public Use
  Company Number: CH-PFIZER INC-2017291953

PATIENT
  Age: 39 Year
  Sex: Female

DRUGS (6)
  1. ZYPREXA [Concomitant]
     Active Substance: OLANZAPINE
     Dosage: 10 MG, UNK (PROBABLY NOT INGESTED)
     Route: 048
     Dates: start: 20170501, end: 20170501
  2. TEMESTA [Suspect]
     Active Substance: LORAZEPAM
     Dosage: 2.5 MG, UNK (PROBABLY NOT INGESTED)
     Route: 048
     Dates: start: 20170501, end: 20170501
  3. TEMESTA [Suspect]
     Active Substance: LORAZEPAM
     Dosage: 2 MG, UNK
     Route: 030
     Dates: start: 20170501, end: 20170501
  4. HALDOL [Suspect]
     Active Substance: HALOPERIDOL
     Dosage: 5 MG, UNK
     Route: 030
     Dates: start: 20170501, end: 20170501
  5. MIDAZOLAM [Concomitant]
     Active Substance: MIDAZOLAM HYDROCHLORIDE
     Dosage: 4 MG, UNK
     Route: 030
     Dates: start: 20170501, end: 20170501
  6. FENTANYL. [Suspect]
     Active Substance: FENTANYL
     Dosage: 500 UG, UNK
     Route: 042
     Dates: start: 20170501, end: 20170501

REACTIONS (2)
  - Respiratory arrest [Recovered/Resolved]
  - Accidental overdose [Recovered/Resolved]

NARRATIVE: CASE EVENT DATE: 20170501
